FAERS Safety Report 4700256-1 (Version None)
Quarter: 2005Q2

REPORT INFORMATION
  Report Type: 
  Country: None (occurrence: None)
  Receive Date: 20050627
  Receipt Date: 20050615
  Transmission Date: 20051028
  Serious: Yes (Death)
  Sender: FDA-Public Use
  Company Number: GB-JNJFOC-20050306691

PATIENT
  Sex: Male

DRUGS (15)
  1. HALDOL [Suspect]
     Indication: SEDATION
     Route: 049
     Dates: start: 20010601
  2. HALDOL [Suspect]
     Indication: SCHIZOPHRENIA
     Route: 049
     Dates: start: 20010601
  3. OLANZAPINE [Concomitant]
     Indication: DRUG USE FOR UNKNOWN INDICATION
  4. AMISULPIRIDE [Concomitant]
     Indication: SCHIZOPHRENIA
  5. CARBAMAZEPINE [Concomitant]
  6. DIAZEPAM [Concomitant]
     Indication: SEDATION
     Dosage: TO BE TAKEN WHEN REQUIRED.
  7. PROCYCLIDINE HYDROCHLORIDE 2MG TAB [Concomitant]
     Indication: ADVERSE DRUG REACTION
  8. CHLORPROMAZINE [Concomitant]
     Dosage: OR TO BE TAKEN WHEN REQUIRED, UP TO A MAXIMUM DOSE OF 25 MG/DAY.
  9. ZOPIDONE [Concomitant]
     Dosage: TAKEN AS NEEDED
     Dates: start: 20010901, end: 20020401
  10. ZOPIDONE [Concomitant]
     Dosage: UP TO 15MG AT HIGHEST DOSE
     Dates: start: 20010901, end: 20020401
  11. ALBUTEROL [Concomitant]
     Dosage: OR TO BE TAKEN WHEN REQUIRED.   DOSE= PUFFS
  12. BECLOMETHASONE DIPROPIONATE [Concomitant]
     Dosage: STRENGTH: 100  DOSE = PUFF  TAKEN AS NEEDED
  13. BECLOMETHASONE DIPROPIONATE [Concomitant]
     Dosage: STENGTH= 200.   DOSE= PUFF
  14. PARACETAMOL [Concomitant]
     Dosage: TO BE TAKEN WHEN REQUIRED.
  15. KEFLEX [Concomitant]
     Dosage: FOR 1 1/2 DAYS UNTIL DEATH.

REACTIONS (2)
  - BRONCHOPNEUMONIA [None]
  - OVERDOSE [None]
